FAERS Safety Report 9552931 (Version 1)
Quarter: 2013Q2

REPORT INFORMATION
  Report Type: Spontaneous
  Country: US (occurrence: None)
  Receive Date: 20130517
  Receipt Date: 20130517
  Transmission Date: 20140414
  Serious: Yes (Hospitalization)
  Sender: FDA-Public Use
  Company Number: 2012PL000212

PATIENT
  Age: 81 Year
  Sex: Female
  Weight: 58.97 kg

DRUGS (9)
  1. IMURAN (AZATHIOPRINE) [Suspect]
     Indication: RHEUMATOID ARTHRITIS
     Dates: start: 20040225
  2. HUMIRA [Suspect]
     Indication: RHEUMATOID ARTHRITIS
     Dates: start: 20120401, end: 20120727
  3. CELEBREX [Concomitant]
  4. METOPROLOL [Concomitant]
  5. ACTONEL [Concomitant]
  6. PLAVIX [Concomitant]
  7. ASA [Concomitant]
  8. IRON [Concomitant]
  9. SIMVASTATIN [Concomitant]

REACTIONS (4)
  - Infected skin ulcer [None]
  - Localised infection [None]
  - Hyperkeratosis [None]
  - Skin ulcer [None]
